FAERS Safety Report 24789696 (Version 1)
Quarter: 2024Q4

REPORT INFORMATION
  Report Type: Spontaneous
  Country: US (occurrence: None)
  Receive Date: 20241229
  Receipt Date: 20241229
  Transmission Date: 20250114
  Serious: Yes (Other)
  Sender: Public
  Company Number: None

PATIENT
  Age: 49 Year
  Sex: Male
  Weight: 121.5 kg

DRUGS (1)
  1. HERBALS\MITRAGYNINE [Suspect]
     Active Substance: HERBALS\MITRAGYNINE

REACTIONS (8)
  - Withdrawal syndrome [None]
  - Chills [None]
  - Pyrexia [None]
  - Drug dependence [None]
  - Insomnia [None]
  - Hyperhidrosis [None]
  - Vision blurred [None]
  - Diarrhoea [None]

NARRATIVE: CASE EVENT DATE: 20241225
